FAERS Safety Report 8848838 (Version 5)
Quarter: 2013Q1

REPORT INFORMATION
  Report Type: Report from Study
  Country: FR (occurrence: FR)
  Receive Date: 20121018
  Receipt Date: 20130313
  Transmission Date: 20140127
  Serious: Yes (Hospitalization, Other)
  Sender: FDA-Public Use
  Company Number: FR-MILLENNIUM PHARMACEUTICALS, INC.-2012-03512

PATIENT
  Sex: 0

DRUGS (15)
  1. VELCADE [Suspect]
     Indication: MANTLE CELL LYMPHOMA
     Dosage: 2.1 MG, UNK
     Route: 058
     Dates: start: 20120131, end: 20120307
  2. VELCADE [Suspect]
     Dosage: 1.3 MG/M2, UNK
     Route: 065
     Dates: start: 20120402
  3. VELCADE [Suspect]
     Dosage: 1.3 MG/M2, UNK
     Route: 065
     Dates: start: 201205
  4. VELCADE [Suspect]
     Dosage: 1.3 MG/M2, UNK
     Route: 065
  5. MABTHERA [Suspect]
     Indication: MANTLE CELL LYMPHOMA
     Dosage: 600 MG, UNK
     Route: 042
     Dates: start: 20120131, end: 20120201
  6. MABTHERA [Suspect]
     Dosage: 375 MG/M2, UNK
     Route: 065
     Dates: start: 20120402
  7. MABTHERA [Suspect]
     Dosage: 375 MG/M2, UNK
     Route: 065
     Dates: start: 201205
  8. LEVACT [Suspect]
     Indication: MANTLE CELL LYMPHOMA
     Dosage: 280 MG, UNK
     Route: 042
     Dates: start: 20120131, end: 20120201
  9. LEVACT [Suspect]
     Dosage: 100 MG/M2, UNK
     Route: 065
     Dates: start: 20120402
  10. LEVACT [Suspect]
     Dosage: 180 UNK, UNK
     Route: 065
     Dates: start: 20120626
  11. DEXAMETHASONE [Suspect]
     Indication: MANTLE CELL LYMPHOMA
     Dosage: 40 MG, UNK
     Route: 048
     Dates: start: 20120201
  12. DEXAMETHASONE [Suspect]
     Dosage: 40 MG, UNK
     Route: 048
     Dates: start: 20120403
  13. SPIRONOLACTONE [Concomitant]
     Indication: HYPERTENSION
     Dosage: UNK
     Route: 048
  14. PRAVASTATINE                       /00880401/ [Concomitant]
     Indication: DYSLIPIDAEMIA
     Route: 048
  15. CLADRIBINE [Concomitant]
     Indication: DYSLIPIDAEMIA
     Route: 048

REACTIONS (5)
  - Visual impairment [Recovered/Resolved]
  - Cholecystitis acute [Recovered/Resolved]
  - Abdominal pain [Recovered/Resolved]
  - Liver function test abnormal [Recovered/Resolved]
  - Off label use [Unknown]
